FAERS Safety Report 24725948 (Version 1)
Quarter: 2024Q4

REPORT INFORMATION
  Report Type: Spontaneous
  Country: FI (occurrence: FI)
  Receive Date: 20241212
  Receipt Date: 20241212
  Transmission Date: 20250115
  Serious: Yes (Other)
  Sender: ABBVIE
  Company Number: FI-ABBVIE-6040467

PATIENT
  Age: 73 Year

DRUGS (1)
  1. RINVOQ [Suspect]
     Active Substance: UPADACITINIB
     Indication: Rheumatic disorder
     Route: 048

REACTIONS (2)
  - Renal failure [Unknown]
  - Glomerular filtration rate abnormal [Unknown]
